FAERS Safety Report 7439398-9 (Version None)
Quarter: 2011Q2

REPORT INFORMATION
  Report Type: 
  Country: None (occurrence: None)
  Receive Date: 20110427
  Receipt Date: 20110418
  Transmission Date: 20111010
  Serious: Yes (Other)
  Sender: FDA-Public Use
  Company Number: US-ASTRAZENECA-2007UW05816

PATIENT
  Age: 433 Month
  Sex: Female
  Weight: 63.5 kg

DRUGS (1)
  1. SEROQUEL [Suspect]
     Indication: DEPRESSION
     Route: 048
     Dates: start: 20051001, end: 20060201

REACTIONS (3)
  - PANCREATITIS [None]
  - INTESTINAL FUNCTIONAL DISORDER [None]
  - PAIN [None]
